FAERS Safety Report 16371989 (Version 1)
Quarter: 2019Q3

REPORT INFORMATION
  Report Type: Spontaneous
  Country: US (occurrence: US)
  Receive Date: 20190529
  Receipt Date: 20190529
  Transmission Date: 20191004
  Serious: No
  Sender: FDA-Public Use
  Company Number: None

PATIENT
  Age: 58 Year
  Sex: Female
  Weight: 69.75 kg

DRUGS (3)
  1. CENTRUM SILVER [Concomitant]
     Active Substance: MINERALS\VITAMINS
  2. ERGOCAL [Concomitant]
  3. L-THYROXINE [Suspect]
     Active Substance: LEVOTHYROXINE
     Indication: THYROID DISORDER
     Dosage: ?          OTHER STRENGTH:25 MCG;QUANTITY:1 TABLET(S);?
     Route: 048

REACTIONS (8)
  - Nervousness [None]
  - Constipation [None]
  - Alopecia [None]
  - Hyperhidrosis [None]
  - Hot flush [None]
  - Pruritus [None]
  - Insomnia [None]
  - Increased appetite [None]

NARRATIVE: CASE EVENT DATE: 20190529
